FAERS Safety Report 4986589-2 (Version None)
Quarter: 2006Q2

REPORT INFORMATION
  Report Type: 
  Country: None (occurrence: None)
  Receive Date: 20060428
  Receipt Date: 20060419
  Transmission Date: 20061013
  Serious: Yes (Death)
  Sender: FDA-Public Use
  Company Number: US-JNJFOC-20040401305

PATIENT
  Sex: Female
  Weight: 80.29 kg

DRUGS (1)
  1. ORTHO EVRA [Suspect]
     Indication: CONTRACEPTION
     Route: 062
     Dates: start: 20031201, end: 20040401

REACTIONS (4)
  - FALL [None]
  - HEADACHE [None]
  - PAIN IN EXTREMITY [None]
  - PULMONARY EMBOLISM [None]
